FAERS Safety Report 5958257-1 (Version None)
Quarter: 2008Q4

REPORT INFORMATION
  Report Type: 
  Country: None (occurrence: None)
  Receive Date: 20081117
  Receipt Date: 20081117
  Transmission Date: 20090506
  Serious: Yes (Hospitalization)
  Sender: FDA-Public Use
  Company Number: None

PATIENT
  Age: 36 Year
  Sex: Male
  Weight: 131.5431 kg

DRUGS (2)
  1. AVELOX [Suspect]
     Indication: BRONCHITIS
     Dosage: 1 PILL 1 PO
     Route: 048
     Dates: start: 20081024, end: 20081027
  2. ROCEPHIN [Suspect]
     Indication: SINUSITIS
     Dosage: 1 INJECTION 1 TIME IM
     Route: 030
     Dates: start: 20081107, end: 20081107

REACTIONS (13)
  - AGITATION [None]
  - ANXIETY [None]
  - BRAIN INJURY [None]
  - CONFUSIONAL STATE [None]
  - CRYING [None]
  - DEPRESSION [None]
  - FEAR [None]
  - LIVER DISORDER [None]
  - NERVOUSNESS [None]
  - PARANOIA [None]
  - RENAL DISORDER [None]
  - SINUSITIS [None]
  - TREMOR [None]
